FAERS Safety Report 12255390 (Version 1)
Quarter: 2016Q2

REPORT INFORMATION
  Report Type: Report from Study
  Country: US (occurrence: US)
  Receive Date: 20160412
  Receipt Date: 20160412
  Transmission Date: 20160815
  Serious: Yes (Hospitalization)
  Sender: FDA-Public Use
  Company Number: PHHY2016US032376

PATIENT
  Age: 61 Year
  Sex: Female
  Weight: 97.3 kg

DRUGS (1)
  1. GILENYA [Suspect]
     Active Substance: FINGOLIMOD HYDROCHLORIDE
     Indication: MULTIPLE SCLEROSIS
     Dosage: 0.5 MG, QD
     Route: 048
     Dates: start: 20150417

REACTIONS (6)
  - Blood alkaline phosphatase increased [Unknown]
  - Alanine aminotransferase increased [Unknown]
  - Bursitis [Unknown]
  - Pneumonia [Recovered/Resolved]
  - Constipation [Unknown]
  - Neuralgia [Unknown]

NARRATIVE: CASE EVENT DATE: 20150701
